FAERS Safety Report 7629347-2 (Version None)
Quarter: 2011Q3

REPORT INFORMATION
  Report Type: 
  Country: None (occurrence: None)
  Receive Date: 20110722
  Receipt Date: 20110715
  Transmission Date: 20111222
  Serious: Yes (Hospitalization, Other)
  Sender: FDA-Public Use
  Company Number: CN-PFIZER INC-CN-WYE-G04396709

PATIENT
  Age: 18 Year
  Sex: Male
  Weight: 55 kg

DRUGS (2)
  1. MOROCTOCOG ALFA [Suspect]
     Indication: FACTOR VIII DEFICIENCY
     Dosage: 2750.0IU GIVEN FOR INITIAL RECOVERY
     Route: 040
     Dates: start: 20090302, end: 20090302
  2. MOROCTOCOG ALFA [Suspect]
     Dosage: 22500.0IU GIVEN ON DEMAND, CUMULATIVE
     Route: 040
     Dates: start: 20090302, end: 20090903

REACTIONS (2)
  - GINGIVAL BLEEDING [None]
  - FACTOR VIII INHIBITION [None]
